FAERS Safety Report 21982932 (Version 2)
Quarter: 2023Q2

REPORT INFORMATION
  Report Type: Other
  Country: CA (occurrence: None)
  Receive Date: 20230213
  Receipt Date: 20230605
  Transmission Date: 20230722
  Serious: Yes (Other)
  Sender: FDA-Public Use
  Company Number: CA-ROCHE-2593738

PATIENT
  Age: 54 Year
  Sex: Female
  Weight: 55.388 kg

DRUGS (7)
  1. OCREVUS [Suspect]
     Active Substance: OCRELIZUMAB
     Indication: Relapsing-remitting multiple sclerosis
     Dosage: 300 MG AT DAY 0 AND 14, THEN 600 MG EVERY 6 MONTH
     Route: 042
     Dates: start: 20180511
  2. ASPIRIN [Concomitant]
     Active Substance: ASPIRIN
  3. ADVIL [Concomitant]
     Active Substance: IBUPROFEN
  4. GABAPENTIN [Concomitant]
     Active Substance: GABAPENTIN
     Route: 065
  5. PERINDOPRIL [Concomitant]
     Active Substance: PERINDOPRIL
  6. PREGABALIN [Concomitant]
     Active Substance: PREGABALIN
  7. OZEMPIC [Concomitant]
     Active Substance: SEMAGLUTIDE

REACTIONS (24)
  - Arthralgia [Not Recovered/Not Resolved]
  - Skin discolouration [Recovered/Resolved]
  - Pain in extremity [Not Recovered/Not Resolved]
  - Headache [Not Recovered/Not Resolved]
  - Musculoskeletal stiffness [Recovered/Resolved]
  - Hypotension [Recovered/Resolved]
  - Dizziness [Unknown]
  - Blood glucose increased [Recovered/Resolved]
  - Raynaud^s phenomenon [Not Recovered/Not Resolved]
  - Pain [Not Recovered/Not Resolved]
  - Fatigue [Unknown]
  - Pain in extremity [Recovered/Resolved]
  - Stomatitis [Recovered/Resolved]
  - Lip pain [Recovered/Resolved]
  - Skin laceration [Recovering/Resolving]
  - Hypertension [Recovered/Resolved]
  - Nasopharyngitis [Recovered/Resolved]
  - Syncope [Recovered/Resolved with Sequelae]
  - Dysphemia [Recovered/Resolved with Sequelae]
  - Stress [Recovered/Resolved with Sequelae]
  - Paraesthesia [Not Recovered/Not Resolved]
  - Burning sensation [Recovering/Resolving]
  - Confusional state [Recovered/Resolved with Sequelae]
  - Drug ineffective [Unknown]

NARRATIVE: CASE EVENT DATE: 20200427
